FAERS Safety Report 14625746 (Version 2)
Quarter: 2018Q1

REPORT INFORMATION
  Report Type: Spontaneous
  Country: JP (occurrence: JP)
  Receive Date: 20180312
  Receipt Date: 20180327
  Transmission Date: 20180509
  Serious: Yes (Hospitalization, Other)
  Sender: FDA-Public Use
  Company Number: JP-GLAXOSMITHKLINE-JP2018JPN033649

PATIENT
  Age: 60 Year
  Sex: Female
  Weight: 48 kg

DRUGS (7)
  1. LOXONIN TABLETS [Suspect]
     Active Substance: LOXOPROFEN SODIUM
     Indication: ABDOMINAL PAIN
     Dosage: UNK UNK, PRN
     Route: 048
     Dates: end: 20180217
  2. LOXONIN TABLETS [Suspect]
     Active Substance: LOXOPROFEN SODIUM
     Indication: PYREXIA
  3. LAMICTAL [Suspect]
     Active Substance: LAMOTRIGINE
     Indication: BIPOLAR DISORDER
     Dosage: 50 MG, 1D
     Route: 048
     Dates: start: 20180122, end: 20180217
  4. CEFTRIAXONE NA [Suspect]
     Active Substance: CEFTRIAXONE
     Dosage: 2 MG, 1D
     Route: 041
  5. DEPAKENE [Concomitant]
     Active Substance: VALPROIC ACID
     Dosage: UNK MG, UNK
  6. BENZALIN (JAPAN) [Concomitant]
     Active Substance: NITRAZEPAM
     Dosage: 5 UNK, UNK
  7. MAGMITT [Concomitant]
     Active Substance: MAGNESIUM OXIDE
     Dosage: UNK UNK, 1D

REACTIONS (7)
  - Appendicitis [Unknown]
  - Oxygen saturation decreased [Recovered/Resolved]
  - Abdominal pain [Unknown]
  - Pulmonary embolism [Unknown]
  - Pyrexia [Recovered/Resolved]
  - Blood pressure decreased [Recovered/Resolved]
  - Papule [Recovered/Resolved]

NARRATIVE: CASE EVENT DATE: 2018
